FAERS Safety Report 17401300 (Version 2)
Quarter: 2020Q1

REPORT INFORMATION
  Report Type: Report from Study
  Country: CH (occurrence: CH)
  Receive Date: 20200211
  Receipt Date: 20200226
  Transmission Date: 20200409
  Serious: Yes (Other)
  Sender: FDA-Public Use
  Company Number: NVSC2020CH036484

PATIENT
  Sex: Male
  Weight: 70 kg

DRUGS (2)
  1. ALDOSTERONE [Concomitant]
     Active Substance: ALDOSTERONE
     Indication: PRODUCT USED FOR UNKNOWN INDICATION
     Dosage: UNK UKN
     Route: 065
  2. ENTRESTO [Suspect]
     Active Substance: SACUBITRIL\VALSARTAN
     Indication: CARDIAC FAILURE
     Dosage: 50 MG, QD
     Route: 048
     Dates: start: 20190203, end: 20190327

REACTIONS (6)
  - Therapeutic response decreased [Recovered/Resolved]
  - Left ventricular dysfunction [Recovered/Resolved]
  - Coronary artery disease [Recovered/Resolved]
  - Tinnitus [Unknown]
  - Somnolence [Unknown]
  - Hypotension [Recovered/Resolved]

NARRATIVE: CASE EVENT DATE: 201903
